FAERS Safety Report 15532869 (Version 20)
Quarter: 2020Q4

REPORT INFORMATION
  Report Type: Report from Study
  Country: JP (occurrence: JP)
  Receive Date: 20181019
  Receipt Date: 20201229
  Transmission Date: 20210113
  Serious: Yes (Hospitalization)
  Sender: FDA-Public Use
  Company Number: JP-ROCHE-2200016

PATIENT
  Age: 55 Year
  Sex: Female
  Weight: 41 kg

DRUGS (48)
  1. ATEZOLIZUMAB. [Suspect]
     Active Substance: ATEZOLIZUMAB
     Indication: OVARIAN CANCER
     Dosage: DATE OF MOST RECENT DOSE RECEIVED ON 31/JUL/2018
     Route: 042
     Dates: start: 20180619
  2. GRANISETRON [Concomitant]
     Active Substance: GRANISETRON
     Dates: start: 20180821, end: 20180821
  3. KETOPROFEN. [Concomitant]
     Active Substance: KETOPROFEN
     Indication: PERIPHERAL SENSORY NEUROPATHY
     Dates: start: 20181002
  4. GRACEVIT [Concomitant]
     Active Substance: SITAFLOXACIN
     Indication: CYSTITIS
     Dates: start: 20180905, end: 20180907
  5. MAGMITT [Concomitant]
     Active Substance: MAGNESIUM OXIDE
     Dates: start: 20201113
  6. BIO-THREE [Concomitant]
     Active Substance: HERBALS
     Dates: start: 20201113
  7. AZUNOL GARGLE LIQUID [Concomitant]
     Indication: MUCOSAL INFECTION
     Dates: start: 20180629
  8. RINDERON VG [Concomitant]
     Active Substance: BETAMETHASONE VALERATE\GENTAMICIN SULFATE
     Indication: DERMATITIS ACNEIFORM
     Dosage: DOSE 0.12 (DOSE UNIT REPORTED AS OTHER)
     Route: 061
     Dates: start: 20180810, end: 20190418
  9. RANITIDINE. [Concomitant]
     Active Substance: RANITIDINE
     Dates: start: 20180821, end: 20180821
  10. DEXART [Concomitant]
     Active Substance: DEXAMETHASONE SODIUM PHOSPHATE
     Route: 042
     Dates: start: 20180821, end: 20180821
  11. POLARAMINE [Concomitant]
     Active Substance: DEXCHLORPHENIRAMINE MALEATE
     Dates: start: 20180821, end: 20180821
  12. DAIKENCHUTO [Concomitant]
     Active Substance: HERBALS
     Dates: start: 20180530
  13. DEXALTIN [Concomitant]
     Active Substance: DEXAMETHASONE
     Indication: STOMATITIS
     Route: 061
     Dates: start: 20181013, end: 20181117
  14. PACLITAXEL. [Suspect]
     Active Substance: PACLITAXEL
     Indication: OVARIAN CANCER
     Dosage: ON DAY 1 OF EACH 21-DAY CYCLE(AS PER PROTOCOL).?MOST RECENT DOSE OF PACLITAXEL (252.9 MG) PRIOR TO H
     Route: 042
     Dates: start: 20180619
  15. BESOFTEN [Concomitant]
     Active Substance: PENTOSAN POLYSULFATE SODIUM
     Indication: DRY SKIN
     Dates: start: 20181017
  16. CALONAL [Concomitant]
     Active Substance: ACETAMINOPHEN
     Indication: HEADACHE
     Dates: start: 20180601, end: 20181007
  17. POSTERISAN FORTE [Concomitant]
     Active Substance: LIDOCAINE
     Indication: ANAL INFLAMMATION
     Route: 061
     Dates: start: 20180823, end: 20181011
  18. EMEND [Concomitant]
     Active Substance: APREPITANT
     Dates: start: 20180821, end: 20180823
  19. DEXART [Concomitant]
     Active Substance: DEXAMETHASONE SODIUM PHOSPHATE
     Indication: PREMEDICATION
     Route: 042
     Dates: start: 20180731, end: 20180731
  20. GRANISETRON [Concomitant]
     Active Substance: GRANISETRON
     Dates: start: 20181002, end: 20181002
  21. LANSOPRAZOLE. [Concomitant]
     Active Substance: LANSOPRAZOLE
     Dates: start: 20180525, end: 20180731
  22. COTRIL [Concomitant]
     Active Substance: SULFAMETHOXAZOLE\TRIMETHOPRIM
     Indication: ADRENAL INSUFFICIENCY
     Dates: start: 20190724
  23. GASCON (JAPAN) [Concomitant]
     Dates: start: 20201113
  24. BEVACIZUMAB. [Suspect]
     Active Substance: BEVACIZUMAB
     Indication: OVARIAN CANCER
     Dosage: 31/JUL/2018, MOST RECENT DOSE OF BEVACIZUMAB (714 MG) PRIOR TO HYPERTHYROIDISM ONSET?02/OCT/2018, MO
     Route: 042
     Dates: start: 20180710
  25. FEXOFENADINE [Concomitant]
     Active Substance: FEXOFENADINE HYDROCHLORIDE
     Indication: RHINITIS ALLERGIC
     Dates: start: 20180604
  26. DEXALTIN [Concomitant]
     Active Substance: DEXAMETHASONE
     Indication: PROPHYLAXIS
  27. BROTIZOLAM [Concomitant]
     Active Substance: BROTIZOLAM
     Indication: INSOMNIA
     Dates: start: 20180530
  28. SENNOSIDE [Concomitant]
     Active Substance: SENNOSIDES
     Indication: CONSTIPATION
     Dates: start: 20180526
  29. OLANZAPINE. [Concomitant]
     Active Substance: OLANZAPINE
     Indication: NAUSEA
     Dates: start: 20180825
  30. EMEND [Concomitant]
     Active Substance: APREPITANT
     Dates: start: 20181002, end: 20181004
  31. RANITIDINE. [Concomitant]
     Active Substance: RANITIDINE
     Dates: start: 20181002, end: 20181002
  32. RANITIDINE. [Concomitant]
     Active Substance: RANITIDINE
     Dates: start: 20180710, end: 20190719
  33. DEXART [Concomitant]
     Active Substance: DEXAMETHASONE SODIUM PHOSPHATE
     Route: 042
     Dates: start: 20181002, end: 20181002
  34. FELBINAC PAP [Concomitant]
     Indication: MYALGIA
     Dates: start: 20180622
  35. AZUNOL [Concomitant]
     Indication: ANAL EROSION
     Dates: start: 20181011, end: 20181117
  36. VIBRAMYCIN [Concomitant]
     Active Substance: DOXYCYCLINE
     Indication: DERMATITIS ACNEIFORM
     Dates: start: 20180724, end: 20180731
  37. THYRADIN [Concomitant]
     Active Substance: LEVOTHYROXINE
     Indication: HYPOTHYROIDISM
     Dates: start: 20181128
  38. CELECOX [Concomitant]
     Active Substance: CELECOXIB
     Indication: ABDOMINAL PAIN
     Dates: start: 20180530
  39. CARBOPLATIN. [Suspect]
     Active Substance: CARBOPLATIN
     Indication: OVARIAN CANCER
     Dosage: AT A DOSE TO ACHIEVE A TARGET AREA UNDER THE CURVE (AUC) OF 6 MILLIGRAMS PER MILLILITER*MINUTE (MG/M
     Route: 042
     Dates: start: 20180619
  40. CALONAL [Concomitant]
     Active Substance: ACETAMINOPHEN
     Indication: ABDOMINAL PAIN
  41. POLARAMINE [Concomitant]
     Active Substance: DEXCHLORPHENIRAMINE MALEATE
     Dates: start: 20181002, end: 20181002
  42. GRANISETRON [Concomitant]
     Active Substance: GRANISETRON
     Indication: PREMEDICATION
     Dates: start: 20180731, end: 20180731
  43. NEXIUM [Concomitant]
     Active Substance: ESOMEPRAZOLE MAGNESIUM
     Dates: start: 20181017, end: 20190324
  44. POLYFUL [Concomitant]
     Active Substance: CALCIUM POLYCARBOPHIL
     Dates: start: 20201113
  45. MAGNESIUM OXIDE. [Concomitant]
     Active Substance: MAGNESIUM OXIDE
     Indication: CONSTIPATION
     Dates: start: 20180607
  46. EMEND [Concomitant]
     Active Substance: APREPITANT
     Indication: PREMEDICATION
     Dates: start: 20180731, end: 20180802
  47. RANITIDINE. [Concomitant]
     Active Substance: RANITIDINE
     Indication: PREMEDICATION
     Dates: start: 20180731, end: 20180731
  48. POLARAMINE [Concomitant]
     Active Substance: DEXCHLORPHENIRAMINE MALEATE
     Indication: PREMEDICATION
     Dates: start: 20180731, end: 20180731

REACTIONS (4)
  - Febrile neutropenia [Recovered/Resolved]
  - Hypothyroidism [Not Recovered/Not Resolved]
  - Colitis [Not Recovered/Not Resolved]
  - Hyperthyroidism [Recovered/Resolved]

NARRATIVE: CASE EVENT DATE: 20180820
